FAERS Safety Report 8607305 (Version 8)
Quarter: 2014Q1

REPORT INFORMATION
  Report Type: Spontaneous
  Country: JP (occurrence: JP)
  Receive Date: 20120611
  Receipt Date: 20140318
  Transmission Date: 20141002
  Serious: Yes (Hospitalization, Disabling)
  Sender: FDA-Public Use
  Company Number: JP-JNJFOC-20120600641

PATIENT
  Age: 40 Year
  Sex: Male
  Weight: 70 kg

DRUGS (7)
  1. REMICADE [Suspect]
     Indication: BEHCET^S SYNDROME
     Route: 042
     Dates: start: 200711
  2. REMICADE [Suspect]
     Indication: BEHCET^S SYNDROME
     Route: 042
  3. REMICADE [Suspect]
     Indication: BEHCET^S SYNDROME
     Dosage: 18TH DOSE
     Route: 042
     Dates: start: 201205
  4. UNKNOWN MEDICATION [Suspect]
     Indication: PRODUCT USED FOR UNKNOWN INDICATION
     Route: 065
  5. ADALAT-L [Concomitant]
     Indication: HYPERTENSION
     Route: 048
     Dates: start: 201111, end: 20120611
  6. SELECTOL [Concomitant]
     Indication: HYPERTENSION
     Route: 048
     Dates: start: 201111, end: 20120611
  7. PREDONINE [Concomitant]
     Indication: BEHCET^S SYNDROME
     Route: 065
     Dates: end: 201205

REACTIONS (2)
  - Renal impairment [Recovered/Resolved]
  - Tubulointerstitial nephritis [Recovering/Resolving]
